FAERS Safety Report 9400213 (Version 2)
Quarter: 2013Q3

REPORT INFORMATION
  Report Type: Spontaneous
  Country: JP (occurrence: JP)
  Receive Date: 20130715
  Receipt Date: 20130719
  Transmission Date: 20140515
  Serious: Yes (Other)
  Sender: FDA-Public Use
  Company Number: JP-UCBSA-091488

PATIENT
  Sex: 0

DRUGS (3)
  1. E KEPPRA [Suspect]
     Dosage: UNKNOWN DOSE
     Route: 048
  2. ALEVIATIN [Concomitant]
     Dosage: UNKNOWN DOSE
  3. LANDSEN [Concomitant]
     Dosage: UNKNOWN DOSE
     Route: 048

REACTIONS (1)
  - Drug reaction with eosinophilia and systemic symptoms [Recovering/Resolving]
